FAERS Safety Report 10146575 (Version 1)
Quarter: 2014Q2

REPORT INFORMATION
  Report Type: Spontaneous
  Country: SE (occurrence: None)
  Receive Date: 20140429
  Receipt Date: 20140429
  Transmission Date: 20141212
  Serious: Yes (Hospitalization)
  Sender: FDA-Public Use
  Company Number: 2014P1003629

PATIENT
  Age: 58 Year
  Sex: Female

DRUGS (17)
  1. PLAQUENIL [Suspect]
     Indication: ARTHROPATHY
     Dates: start: 20131114, end: 20131127
  2. DENTAN [Concomitant]
  3. XERODENT [Concomitant]
  4. OMEPRAZOLE [Concomitant]
  5. GAVISCON [Concomitant]
  6. FOLACIN [Concomitant]
  7. AMLODIPINE [Concomitant]
  8. ATORVASTATIN [Concomitant]
  9. KETOCONAZOLE [Concomitant]
  10. PREDNISONE [Concomitant]
  11. TRADOLAN RETARD [Concomitant]
  12. ALVEDON [Concomitant]
  13. LYRICA [Concomitant]
  14. PAPAVERINE [Concomitant]
  15. SCHERIPROCT [Concomitant]
  16. DAKACORT [Concomitant]
  17. BETANOCAT [Concomitant]

REACTIONS (1)
  - Chest pain [None]
